FAERS Safety Report 19921981 (Version 1)
Quarter: 2021Q4

REPORT INFORMATION
  Report Type: Spontaneous
  Country: DE (occurrence: DE)
  Receive Date: 20211006
  Receipt Date: 20211006
  Transmission Date: 20220304
  Serious: No
  Sender: FDA-Public Use
  Company Number: None

PATIENT
  Sex: Male

DRUGS (4)
  1. TAMSULOSIN HYDROCHLORIDE [Suspect]
     Active Substance: TAMSULOSIN HYDROCHLORIDE
     Indication: Product used for unknown indication
     Dosage: 1 DOSAGE FORM, QD
     Route: 065
     Dates: end: 201901
  2. CRESTOR [Suspect]
     Active Substance: ROSUVASTATIN CALCIUM
     Indication: Blood cholesterol increased
     Dosage: 10 MILLIGRAM, QD
     Route: 065
     Dates: start: 2010
  3. DUTASTERIDE\TAMSULOSIN [Suspect]
     Active Substance: DUTASTERIDE\TAMSULOSIN
     Indication: Prostatomegaly
     Dosage: UNK
     Route: 065
     Dates: start: 201801, end: 201901
  4. VESIKUR [Suspect]
     Active Substance: SOLIFENACIN SUCCINATE
     Indication: Product used for unknown indication
     Dosage: UNK
     Route: 065
     Dates: start: 2018, end: 2018

REACTIONS (9)
  - Frequent bowel movements [Unknown]
  - Hepatic steatosis [Unknown]
  - Prostatic specific antigen increased [Unknown]
  - Prostatomegaly [Unknown]
  - Dysgeusia [Unknown]
  - Dry throat [Unknown]
  - Drug ineffective [Unknown]
  - Dry mouth [Unknown]
  - Product taste abnormal [Unknown]
